FAERS Safety Report 12437523 (Version 1)
Quarter: 2016Q2

REPORT INFORMATION
  Report Type: Spontaneous
  Country: BH (occurrence: BH)
  Receive Date: 20160606
  Receipt Date: 20160606
  Transmission Date: 20160815
  Serious: Yes (Hospitalization)
  Sender: FDA-Public Use
  Company Number: BH-JNJFOC-20160529396

PATIENT
  Age: 20 Year
  Sex: Male

DRUGS (4)
  1. VINBLASTINE [Suspect]
     Active Substance: VINBLASTINE
     Indication: HODGKIN^S DISEASE
     Route: 065
  2. DOXORUBICIN HYDROCHLORIDE. [Suspect]
     Active Substance: DOXORUBICIN HYDROCHLORIDE
     Indication: HODGKIN^S DISEASE
     Route: 065
  3. BLEOMYCIN [Suspect]
     Active Substance: BLEOMYCIN SULFATE
     Indication: HODGKIN^S DISEASE
     Route: 065
  4. DACARBAZINE. [Suspect]
     Active Substance: DACARBAZINE
     Indication: HODGKIN^S DISEASE
     Route: 065

REACTIONS (10)
  - Pneumonia salmonella [Recovering/Resolving]
  - Lymphadenopathy [None]
  - Mediastinal disorder [None]
  - Empyema [Recovering/Resolving]
  - Back pain [None]
  - Lung consolidation [None]
  - Pleural effusion [None]
  - Atelectasis [None]
  - Lymphadenopathy mediastinal [None]
  - Hilar lymphadenopathy [None]
